FAERS Safety Report 7210200-3 (Version None)
Quarter: 2010Q4

REPORT INFORMATION
  Report Type: 
  Country: None (occurrence: None)
  Receive Date: 20101223
  Receipt Date: 20101208
  Transmission Date: 20110411
  Serious: Yes (Death)
  Sender: FDA-Public Use
  Company Number: APP201001077

PATIENT
  Age: 62 Year
  Sex: Female

DRUGS (12)
  1. HEPARIN SODIUM INJECTION [Suspect]
     Indication: INTRAVENOUS CATHETER MANAGEMENT
     Dosage: , INTRAVENOUS
     Route: 042
  2. FONDAPARINUX (FONDAPARINUX) [Concomitant]
  3. ZOLPIDEM [Concomitant]
  4. LORAZEPAM [Concomitant]
  5. DULOXETINE HYDROCHLORIDE [Concomitant]
  6. FENTANYL [Concomitant]
  7. HYDROMORPHONE HCL [Concomitant]
  8. ONDANSETRON [Concomitant]
  9. BORTEZOMIB [Concomitant]
  10. CYCLOPHOSPHAMIDE [Concomitant]
  11. DEXAMETHASONE [Concomitant]
  12. ARGATROBAN [Concomitant]

REACTIONS (6)
  - CEREBRAL HAEMORRHAGE [None]
  - DIZZINESS [None]
  - HEADACHE [None]
  - HEPARIN-INDUCED THROMBOCYTOPENIA [None]
  - INTRACRANIAL PRESSURE INCREASED [None]
  - PAIN IN EXTREMITY [None]
